FAERS Safety Report 6119649-3 (Version None)
Quarter: 2009Q1

REPORT INFORMATION
  Report Type: 
  Country: None (occurrence: None)
  Receive Date: 20090316
  Receipt Date: 20090305
  Transmission Date: 20090719
  Serious: Yes (Hospitalization)
  Sender: FDA-Public Use
  Company Number: FR-JNJFOC-20090301958

PATIENT
  Age: 59 Year
  Sex: Male

DRUGS (3)
  1. REMICADE [Suspect]
     Dosage: REINTRODUCED THE END OF 2008
     Route: 042
  2. REMICADE [Suspect]
     Indication: ANKYLOSING SPONDYLITIS
     Dosage: DISCONTINUATION FOR A FEW MONTHS
     Route: 042
  3. SALAZOPYRINE [Concomitant]

REACTIONS (1)
  - VARICELLA [None]
